FAERS Safety Report 25487900 (Version 1)
Quarter: 2025Q2

REPORT INFORMATION
  Report Type: Spontaneous
  Country: HR (occurrence: HR)
  Receive Date: 20250627
  Receipt Date: 20250627
  Transmission Date: 20250716
  Serious: Yes (Other)
  Sender: TEVA
  Company Number: None

PATIENT
  Age: 17 Year
  Sex: Female

DRUGS (4)
  1. QUETIAPINE [Suspect]
     Active Substance: QUETIAPINE
     Indication: Product used for unknown indication
     Route: 048
     Dates: start: 20250509, end: 20250509
  2. FEVARIN [Concomitant]
     Active Substance: FLUVOXAMINE MALEATE
     Indication: Product used for unknown indication
     Route: 048
  3. LAMOTRIGINE [Concomitant]
     Active Substance: LAMOTRIGINE
     Indication: Product used for unknown indication
     Route: 048
  4. HALDOL [Concomitant]
     Active Substance: HALOPERIDOL
     Indication: Product used for unknown indication
     Route: 048

REACTIONS (3)
  - Suicide attempt [Unknown]
  - Intentional overdose [Unknown]
  - No adverse event [Unknown]

NARRATIVE: CASE EVENT DATE: 20250509
